FAERS Safety Report 13861858 (Version 2)
Quarter: 2017Q3

REPORT INFORMATION
  Report Type: Report from Study
  Country: BR (occurrence: BR)
  Receive Date: 20170811
  Receipt Date: 20170922
  Transmission Date: 20171127
  Serious: Yes (Other)
  Sender: FDA-Public Use
  Company Number: BR-EMD SERONO-E2B_80077842

PATIENT
  Sex: Female

DRUGS (1)
  1. REBIF [Suspect]
     Active Substance: INTERFERON BETA-1A
     Indication: MULTIPLE SCLEROSIS
     Route: 058
     Dates: start: 20170425

REACTIONS (10)
  - Fear [Not Recovered/Not Resolved]
  - Crying [Not Recovered/Not Resolved]
  - Headache [Recovered/Resolved]
  - Hallucination, auditory [Recovering/Resolving]
  - Hyperhidrosis [Recovered/Resolved]
  - Pain [Not Recovered/Not Resolved]
  - Delirium [Recovering/Resolving]
  - Feeling abnormal [Recovering/Resolving]
  - Depressed mood [Recovering/Resolving]
  - Night sweats [Recovered/Resolved]

NARRATIVE: CASE EVENT DATE: 2017
